FAERS Safety Report 15819570 (Version 1)
Quarter: 2019Q1

REPORT INFORMATION
  Report Type: Spontaneous
  Country: US (occurrence: US)
  Receive Date: 20190114
  Receipt Date: 20190114
  Transmission Date: 20190417
  Serious: No
  Sender: FDA-Public Use
  Company Number: US-AMGEN-USASP2019003040

PATIENT
  Age: 76 Year
  Sex: Female

DRUGS (2)
  1. PROLIA [Suspect]
     Active Substance: DENOSUMAB
     Indication: MENOPAUSE
     Dosage: UNK, Q6MO
     Route: 065
     Dates: start: 2014
  2. PROLIA [Suspect]
     Active Substance: DENOSUMAB
     Indication: AROMATASE INHIBITION THERAPY

REACTIONS (4)
  - Cartilage injury [Unknown]
  - Osteoarthritis [Unknown]
  - Tendonitis [Unknown]
  - Off label use [Unknown]

NARRATIVE: CASE EVENT DATE: 201807
